FAERS Safety Report 8065131-6 (Version None)
Quarter: 2012Q1

REPORT INFORMATION
  Report Type: 
  Country: None (occurrence: None)
  Receive Date: 20120117
  Receipt Date: 20120109
  Transmission Date: 20120608
  Serious: Yes (Other)
  Sender: FDA-Public Use
  Company Number: TPA2011A08565

PATIENT
  Age: 71 Year
  Sex: Male

DRUGS (1)
  1. ACTOS [Suspect]
     Dosage: 45 MG, 1 IN 1 D
     Dates: start: 20081101, end: 20111101

REACTIONS (1)
  - BLADDER TRANSITIONAL CELL CARCINOMA [None]
